FAERS Safety Report 24019362 (Version 1)
Quarter: 2024Q2

REPORT INFORMATION
  Report Type: Spontaneous
  Country: IT (occurrence: IT)
  Receive Date: 20240627
  Receipt Date: 20240627
  Transmission Date: 20240715
  Serious: Yes (Other)
  Sender: FDA-Public Use
  Company Number: IT-JNJFOC-20240621309

PATIENT
  Age: 58 Year
  Sex: Female

DRUGS (9)
  1. MIRTAZAPINE [Suspect]
     Active Substance: MIRTAZAPINE
     Indication: Bipolar disorder
     Dosage: 30 MILLIGRAM (30 TABLETS 30 MG)
     Route: 065
  2. XANAX [Suspect]
     Active Substance: ALPRAZOLAM
     Indication: Bipolar disorder
     Dosage: 1 MILLIGRAM (20 TABLETS 1 MG)
     Route: 065
  3. TALOFEN [Suspect]
     Active Substance: PROMAZINE HYDROCHLORIDE
     Indication: Bipolar disorder
     Dosage: UNK
     Route: 065
  4. VALIUM [Suspect]
     Active Substance: DIAZEPAM
     Indication: Bipolar disorder
     Dosage: 2 MILLIGRAM
     Route: 065
  5. CYMBALTA [Suspect]
     Active Substance: DULOXETINE HYDROCHLORIDE
     Indication: Bipolar disorder
     Dosage: 60 MILLIGRAM (60 MG 28 GASTRO-RESISTANT CAPSULES)
     Route: 065
  6. FENTANYL [Suspect]
     Active Substance: FENTANYL\FENTANYL CITRATE
     Indication: Bipolar disorder
     Dosage: 1 DOSAGE FORM (75MCG/HOUR, INGESTION (AS REPORTED)
     Route: 062
  7. FENTANYL [Suspect]
     Active Substance: FENTANYL\FENTANYL CITRATE
     Dosage: 1 DOSAGE FORM (75MCG/HOUR)
     Route: 062
  8. LEVOTHYROXINE SODIUM [Suspect]
     Active Substance: LEVOTHYROXINE SODIUM
     Indication: Bipolar disorder
     Dosage: 200 MICROGRAM (50 TABLETS 200 MCG)
     Route: 065
  9. LORMETAZEPAM [Suspect]
     Active Substance: LORMETAZEPAM
     Indication: Bipolar disorder
     Dosage: ORAL DROPS 20 ML 0.25%
     Route: 065

REACTIONS (5)
  - Self-destructive behaviour [Unknown]
  - Miosis [Unknown]
  - Catatonia [Unknown]
  - Off label use [Unknown]
  - Intentional product misuse [Unknown]
